FAERS Safety Report 8073274-6 (Version None)
Quarter: 2011Q4

REPORT INFORMATION
  Report Type: 
  Country: None (occurrence: None)
  Receive Date: 20111221
  Receipt Date: 20111025
  Transmission Date: 20120403
  Serious: Yes (Other)
  Sender: FDA-Public Use
  Company Number: PHHY2011US25364

PATIENT
  Age: 78 Year
  Sex: Male
  Weight: 83.2 kg

DRUGS (9)
  1. EXJADE [Suspect]
     Indication: IRON OVERLOAD
     Dosage: 1500MG, DAILY, ORAL
     Route: 048
  2. FUROSEMIDE [Concomitant]
  3. MACRODANTIN [Concomitant]
  4. TOPROL-XL [Concomitant]
  5. PROSCAR [Concomitant]
  6. UROXATRAL [Concomitant]
  7. FLUCONAZOLE [Concomitant]
  8. MAGNESIUM (MAGNESIUM) [Concomitant]
  9. ACYCLOVIR (ACICLOVIR) CAPSULE [Concomitant]

REACTIONS (6)
  - FATIGUE [None]
  - DYSPNOEA [None]
  - OEDEMA PERIPHERAL [None]
  - FLATULENCE [None]
  - DIARRHOEA [None]
  - DECREASED APPETITE [None]
